FAERS Safety Report 7187776-8 (Version None)
Quarter: 2010Q4

REPORT INFORMATION
  Report Type: 
  Country: None (occurrence: None)
  Receive Date: 20101222
  Receipt Date: 20100708
  Transmission Date: 20110411
  Serious: No
  Sender: FDA-Public Use
  Company Number: US-AMGEN-KDL423003

PATIENT

DRUGS (5)
  1. ENBREL [Suspect]
     Indication: PRODUCT USED FOR UNKNOWN INDICATION
     Dosage: 50 MG, QWK
     Route: 058
  2. FOLIC ACID [Concomitant]
     Dosage: 1 MG, UNK
  3. FLUOXETINE HYDROCHLORIDE [Concomitant]
     Dosage: 20 MG, UNK
  4. VITAMIN B COMPLEX [Concomitant]
     Dosage: UNK UNK, UNK
  5. LOVAZA [Concomitant]
     Dosage: 1000 MG, UNK

REACTIONS (2)
  - EAR DISCOMFORT [None]
  - TINNITUS [None]
